FAERS Safety Report 10668035 (Version 1)
Quarter: 2014Q4

REPORT INFORMATION
  Report Type: Spontaneous
  Country: US (occurrence: None)
  Receive Date: 20141219
  Receipt Date: 20141219
  Transmission Date: 20150529
  Serious: Yes (Other)
  Sender: FDA-Public Use
  Company Number: None

PATIENT

DRUGS (1)
  1. TIVICAY [Suspect]
     Active Substance: DOLUTEGRAVIR SODIUM
     Indication: HIV INFECTION
     Dosage: 1 TABLET
     Route: 048
     Dates: start: 20141106, end: 20141206

REACTIONS (5)
  - Gait disturbance [None]
  - Insomnia [None]
  - Product substitution issue [None]
  - Hearing impaired [None]
  - Pain in extremity [None]

NARRATIVE: CASE EVENT DATE: 20141106
